FAERS Safety Report 25075015 (Version 4)
Quarter: 2025Q3

REPORT INFORMATION
  Report Type: Spontaneous
  Country: RU (occurrence: RU)
  Receive Date: 20250313
  Receipt Date: 20250803
  Transmission Date: 20251020
  Serious: Yes (Hospitalization, Other)
  Sender: ALEXION PHARMACEUTICALS
  Company Number: RU-ASPEN-GLO2025RU001704

PATIENT
  Age: 30 Year
  Sex: Female

DRUGS (10)
  1. OMEPRAZOLE [Suspect]
     Active Substance: OMEPRAZOLE
     Indication: Product used for unknown indication
     Route: 065
  2. BUPIVACAINE [Suspect]
     Active Substance: BUPIVACAINE
     Indication: Product used for unknown indication
     Dosage: 8 MILLILITRE, SINGLE,  BOLUSES INTO THE EPIDURAL CATHETER
     Dates: start: 20231228, end: 20231228
  3. BUPIVACAINE [Suspect]
     Active Substance: BUPIVACAINE
     Dosage: 8 MILLILITRE, SINGLE,  BOLUSES INTO THE EPIDURAL CATHETER
     Dates: start: 20231228, end: 20231228
  4. BUPIVACAINE [Suspect]
     Active Substance: BUPIVACAINE
     Dosage: 16 MILLILITRE, SINGLE,  BOLUSES INTO THE EPIDURAL CATHETER
     Dates: start: 20231228, end: 20231228
  5. NADROPARIN CALCIUM [Suspect]
     Active Substance: NADROPARIN CALCIUM
     Indication: Product used for unknown indication
  6. HETASTARCH\SODIUM CHLORIDE [Suspect]
     Active Substance: HETASTARCH\SODIUM CHLORIDE
     Indication: Product used for unknown indication
     Route: 065
  7. KETOROLAC [Suspect]
     Active Substance: KETOROLAC TROMETHAMINE
     Indication: Product used for unknown indication
     Route: 065
  8. OXYTOCIN [Suspect]
     Active Substance: OXYTOCIN
     Indication: Product used for unknown indication
     Route: 065
  9. ADEMETIONINE [Suspect]
     Active Substance: ADEMETIONINE
     Indication: Product used for unknown indication
     Route: 065
  10. CEFTRIAXONE [Suspect]
     Active Substance: CEFTRIAXONE
     Indication: Product used for unknown indication
     Route: 065

REACTIONS (1)
  - Subdural haematoma [Recovered/Resolved]

NARRATIVE: CASE EVENT DATE: 20240102
